FAERS Safety Report 23464773 (Version 1)
Quarter: 2024Q1

REPORT INFORMATION
  Report Type: Other
  Country: GB (occurrence: GB)
  Receive Date: 20240201
  Receipt Date: 20240201
  Transmission Date: 20240410
  Serious: Yes (Other)
  Sender: FDA-Public Use
  Company Number: GB-MACLEODS PHARMA EU LTD-MAC2022038931

PATIENT

DRUGS (1)
  1. EMTRICITABINE\TENOFOVIR DISOPROXIL [Suspect]
     Active Substance: EMTRICITABINE\TENOFOVIR DISOPROXIL
     Indication: Prophylaxis against HIV infection
     Dosage: 1 DOSAGE FORM, QD
     Route: 065
     Dates: start: 20221109, end: 20221202

REACTIONS (7)
  - Erythema nodosum [Recovered/Resolved]
  - Peripheral swelling [Unknown]
  - Arthralgia [Unknown]
  - Tendonitis [Unknown]
  - Pyrexia [Unknown]
  - Eye pain [Unknown]
  - Tinnitus [Unknown]

NARRATIVE: CASE EVENT DATE: 20221116
